FAERS Safety Report 5404551-2 (Version None)
Quarter: 2007Q3

REPORT INFORMATION
  Report Type: 
  Country: None (occurrence: None)
  Receive Date: 20070730
  Receipt Date: 20070719
  Transmission Date: 20080115
  Serious: Yes (Death)
  Sender: FDA-Public Use
  Company Number: 2007JP002534

PATIENT
  Age: 75 Year
  Sex: Male
  Weight: 64 kg

DRUGS (8)
  1. PROGRAF [Suspect]
     Indication: RHEUMATOID ARTHRITIS
     Dosage: 1.5 MG, UID/QD, ORAL; 1 MG, UID/QD, ORAL
     Route: 048
     Dates: start: 20061225, end: 20070121
  2. PROGRAF [Suspect]
     Indication: RHEUMATOID ARTHRITIS
     Dosage: 1.5 MG, UID/QD, ORAL; 1 MG, UID/QD, ORAL
     Route: 048
     Dates: start: 20070122, end: 20070531
  3. VOLTAREN (DICLOFENAC) MODIFIED RELEASE CAPSULE [Concomitant]
  4. CYTOTEC [Concomitant]
  5. AZULFIDINE ENTERIC TABLET [Concomitant]
  6. PREDNISOLONE [Concomitant]
  7. SEREVENT (SALMETEROL XINAFOATE) INHALATION [Concomitant]
  8. BAKTAR (SULFAMETHOXAZOLE, TRIMETHOPRIM) TABLET [Concomitant]

REACTIONS (3)
  - BRONCHOPULMONARY ASPERGILLOSIS [None]
  - INTERSTITIAL LUNG DISEASE [None]
  - PULMONARY ALVEOLAR HAEMORRHAGE [None]
